FAERS Safety Report 7485300-3 (Version None)
Quarter: 2011Q2

REPORT INFORMATION
  Report Type: 
  Country: None (occurrence: None)
  Receive Date: 20110517
  Receipt Date: 20101216
  Transmission Date: 20111010
  Serious: No
  Sender: FDA-Public Use
  Company Number: US-BAYER-2010-006405

PATIENT
  Sex: Female

DRUGS (1)
  1. MIRENA [Suspect]
     Dosage: DAILY DOSE 20 ?G
     Route: 015

REACTIONS (4)
  - AMENORRHOEA [None]
  - BREAST TENDERNESS [None]
  - METRORRHAGIA [None]
  - PREGNANCY WITH CONTRACEPTIVE DEVICE [None]
